FAERS Safety Report 5379535-3 (Version None)
Quarter: 2007Q3

REPORT INFORMATION
  Report Type: 
  Country: None (occurrence: None)
  Receive Date: 20070703
  Receipt Date: 20070620
  Transmission Date: 20080115
  Serious: Yes (Other)
  Sender: FDA-Public Use
  Company Number: T200700725

PATIENT
  Age: 57 Year
  Sex: Male

DRUGS (8)
  1. METHYLIN ER [Suspect]
     Indication: DEPRESSIVE SYMPTOM
  2. METHYLIN ER [Suspect]
     Indication: DISTURBANCE IN ATTENTION
  3. CYCLOSPORINE [Concomitant]
  4. VENLAFAXINE HCL [Concomitant]
  5. OMEPRAZOLE [Concomitant]
  6. HYDROCHLOROTHIAZIDE [Concomitant]
  7. FOSINOPRIL SODIUM [Concomitant]
  8. MULTIVITAMIN /00831701/ (VITAMINS NOS) [Concomitant]

REACTIONS (4)
  - ANXIETY [None]
  - AUTOIMMUNE HEPATITIS [None]
  - HAEMATOCRIT DECREASED [None]
  - HAEMOGLOBIN DECREASED [None]
